FAERS Safety Report 6518953-4 (Version None)
Quarter: 2009Q4

REPORT INFORMATION
  Report Type: 
  Country: None (occurrence: None)
  Receive Date: 20091228
  Receipt Date: 20091215
  Transmission Date: 20100525
  Serious: Yes (Other)
  Sender: FDA-Public Use
  Company Number: CHPA2009IT22873

PATIENT
  Sex: Male

DRUGS (1)
  1. TRIAMINIC FLU (NCH) [Suspect]
     Indication: NASOPHARYNGITIS
     Dosage: 2 DF, QD
     Route: 048
     Dates: start: 20091010, end: 20091011

REACTIONS (2)
  - BRONCHOSPASM [None]
  - DYSPNOEA [None]
